FAERS Safety Report 11225019 (Version 3)
Quarter: 2015Q3

REPORT INFORMATION
  Report Type: Spontaneous
  Country: AR (occurrence: AR)
  Receive Date: 20150629
  Receipt Date: 20150902
  Transmission Date: 20151125
  Serious: Yes (Hospitalization)
  Sender: FDA-Public Use
  Company Number: AR-PFIZER INC-2015064581

PATIENT
  Age: 57 Year
  Sex: Male

DRUGS (4)
  1. SUTENT [Suspect]
     Active Substance: SUNITINIB MALATE
     Dosage: UNK
  2. SUTENT [Suspect]
     Active Substance: SUNITINIB MALATE
     Indication: METASTATIC RENAL CELL CARCINOMA
     Dosage: 50 MG, CYCLIC (SCHEME 4/2)
     Dates: start: 20140614
  3. ZOLEDRONIC ACID [Concomitant]
     Active Substance: ZOLEDRONIC ACID
     Dosage: UNK
  4. SUTENT [Suspect]
     Active Substance: SUNITINIB MALATE
     Dosage: 37.5 MG, CYCLIC (28 DAYS ON, 14 DAYS OFF)
     Dates: start: 201505, end: 20150810

REACTIONS (21)
  - Oesophageal disorder [Recovering/Resolving]
  - Gastrooesophageal reflux disease [Recovering/Resolving]
  - Gastric disorder [Recovering/Resolving]
  - Gingival bleeding [Recovering/Resolving]
  - Epistaxis [Recovering/Resolving]
  - Impaired healing [Recovering/Resolving]
  - Pain [Recovering/Resolving]
  - Gingival swelling [Recovering/Resolving]
  - Oral pain [Recovered/Resolved]
  - Stomatitis [Recovering/Resolving]
  - Liver disorder [Recovering/Resolving]
  - Insomnia [Recovering/Resolving]
  - Mouth haemorrhage [Recovering/Resolving]
  - Wound haemorrhage [Recovering/Resolving]
  - Nervousness [Recovering/Resolving]
  - Tooth disorder [Recovering/Resolving]
  - Feeding disorder [Recovering/Resolving]
  - Bone disorder [Recovering/Resolving]
  - Colitis [Recovering/Resolving]
  - Vomiting [Recovering/Resolving]
  - Dysgeusia [Recovering/Resolving]

NARRATIVE: CASE EVENT DATE: 20140616
